FAERS Safety Report 8471555-5 (Version None)
Quarter: 2012Q2

REPORT INFORMATION
  Report Type: 
  Country: None (occurrence: None)
  Receive Date: 20120627
  Receipt Date: 20120618
  Transmission Date: 20120825
  Serious: Yes (Hospitalization, Other)
  Sender: FDA-Public Use
  Company Number: FR-ASTRAZENECA-2012SE41219

PATIENT
  Age: 57 Year
  Sex: Female

DRUGS (4)
  1. REQUIP [Suspect]
     Indication: PARKINSON'S DISEASE
     Dosage: 5 MG AT 7 A.M AND 4 MG AT 11 A.M, 3 P.M, AND 7 P.M
     Route: 048
  2. CRESTOR [Suspect]
     Indication: HYPERCHOLESTEROLAEMIA
     Route: 048
  3. AMANTADINE HCL [Suspect]
     Indication: PARKINSON'S DISEASE
     Route: 048
  4. MODOPAR [Suspect]
     Indication: PARKINSON'S DISEASE
     Dosage: 125 MG AT 7 A.M AND 250 MG AT 11 A.M, 3 P.M, AND 7 P.M
     Route: 048

REACTIONS (3)
  - OESOPHAGITIS [None]
  - GASTRIC ULCER [None]
  - IRON DEFICIENCY ANAEMIA [None]
